FAERS Safety Report 5844729-7 (Version None)
Quarter: 2008Q3

REPORT INFORMATION
  Report Type: 
  Country: None (occurrence: None)
  Receive Date: 20080814
  Receipt Date: 20080804
  Transmission Date: 20090109
  Serious: Yes (Other)
  Sender: FDA-Public Use
  Company Number: IT-JNJFOC-20080604430

PATIENT
  Sex: Male

DRUGS (8)
  1. TMC125 [Suspect]
     Route: 048
  2. TMC125 [Suspect]
     Indication: HIV INFECTION
     Route: 048
  3. PREZISTA [Suspect]
     Route: 048
  4. PREZISTA [Suspect]
     Indication: HIV INFECTION
     Route: 048
  5. ENFUVIRTIDE [Concomitant]
     Indication: HIV INFECTION
  6. EPIVIR [Concomitant]
     Indication: HIV INFECTION
  7. NORVIR [Concomitant]
     Indication: HIV INFECTION
  8. MK-0518 [Concomitant]
     Indication: HIV INFECTION

REACTIONS (1)
  - HEPATITIS CHOLESTATIC [None]
